APPROVED DRUG PRODUCT: LOCOID LIPOCREAM
Active Ingredient: HYDROCORTISONE BUTYRATE
Strength: 0.1%
Dosage Form/Route: CREAM;TOPICAL
Application: N020769 | Product #001 | TE Code: AB2
Applicant: PRECISION DERMATOLOGY INC
Approved: Sep 8, 1997 | RLD: Yes | RS: Yes | Type: RX